FAERS Safety Report 7148400-3 (Version None)
Quarter: 2010Q4

REPORT INFORMATION
  Report Type: 
  Country: None (occurrence: None)
  Receive Date: 20101209
  Receipt Date: 20101129
  Transmission Date: 20110411
  Serious: Yes (Hospitalization)
  Sender: FDA-Public Use
  Company Number: US-ELI_LILLY_AND_COMPANY-US201012000131

PATIENT
  Sex: Female

DRUGS (1)
  1. HUMALOG MIX 75/25 [Suspect]
     Indication: DIABETES MELLITUS
     Dates: start: 20101018

REACTIONS (2)
  - BLOOD GLUCOSE INCREASED [None]
  - INCORRECT DOSE ADMINISTERED [None]
